FAERS Safety Report 4530525-X (Version None)
Quarter: 2004Q4

REPORT INFORMATION
  Report Type: 
  Country: None (occurrence: None)
  Receive Date: 20041216
  Receipt Date: 20041130
  Transmission Date: 20050328
  Serious: Yes (Death, Life-Threatening)
  Sender: FDA-Public Use
  Company Number: WAES 0409FIN00017

PATIENT
  Age: 20 Year
  Sex: Female

DRUGS (22)
  1. CANCIDAS [Suspect]
     Indication: SYSTEMIC CANDIDA
     Dosage: SEE IMAGE
     Route: 042
     Dates: start: 20031006, end: 20031017
  2. CANCIDAS [Suspect]
     Indication: SYSTEMIC CANDIDA
     Dosage: SEE IMAGE
     Route: 042
     Dates: start: 20031018, end: 20031114
  3. VALPROATE SODIUM [Suspect]
     Indication: STATUS EPILEPTICUS
     Dosage: 800 MG/TID
     Dates: start: 20030925, end: 20031103
  4. FOSPHENYTOIN SODIUM [Suspect]
     Indication: STATUS EPILEPTICUS
     Dates: start: 20030927, end: 20031103
  5. AMPHOTERICIN B [Suspect]
     Indication: SYSTEMIC CANDIDA
     Dosage: 75 MG/DAILY IV
     Route: 042
     Dates: start: 20030929, end: 20031014
  6. CLONAZEPAM [Suspect]
     Indication: STATUS EPILEPTICUS
     Dosage: 2 MG/BID PO
     Route: 048
     Dates: start: 20030901, end: 20031103
  7. CEFTRIAXONE SODIUM [Concomitant]
  8. CEFUROXIME [Concomitant]
  9. FLUCONAZOLE [Concomitant]
  10. FLUCONAZOLE [Concomitant]
  11. GABAPENTIN [Concomitant]
  12. LAMOTRIGINE [Concomitant]
  13. LAMOTRIGINE [Concomitant]
  14. METHYLPREDNISOLONE [Concomitant]
  15. PANTOPRAZOLE [Concomitant]
  16. PARECOXIB SODIUM [Concomitant]
  17. PHENOBARBITAL [Concomitant]
  18. PROPOFOL [Concomitant]
  19. ROCURONIUM BROMIDE [Concomitant]
  20. TOPIRAMATE [Concomitant]
  21. VANCOMYCIN [Concomitant]
  22. VANCOMYCIN [Concomitant]

REACTIONS (30)
  - ACUTE RESPIRATORY DISTRESS SYNDROME [None]
  - ALANINE AMINOTRANSFERASE INCREASED [None]
  - AMMONIA INCREASED [None]
  - BLOOD ALKALINE PHOSPHATASE INCREASED [None]
  - BLOOD BILIRUBIN INCREASED [None]
  - BLOOD LACTIC ACID INCREASED [None]
  - CSF TEST ABNORMAL [None]
  - DENTAL OPERATION [None]
  - DEPRESSION [None]
  - DRUG INEFFECTIVE [None]
  - ENCEPHALITIS [None]
  - ENTEROCOCCAL INFECTION [None]
  - ESCHERICHIA INFECTION [None]
  - EXANTHEM [None]
  - GAMMA-GLUTAMYLTRANSFERASE INCREASED [None]
  - GENERAL PHYSICAL HEALTH DETERIORATION [None]
  - HAEMODIALYSIS [None]
  - HEPATIC NECROSIS [None]
  - HEPATO-LENTICULAR DEGENERATION [None]
  - INTERNATIONAL NORMALISED RATIO INCREASED [None]
  - JAUNDICE [None]
  - LOSS OF CONSCIOUSNESS [None]
  - MULTI-ORGAN FAILURE [None]
  - PSEUDOMONAS INFECTION [None]
  - PSYCHOTIC DISORDER [None]
  - PULMONARY EMBOLISM [None]
  - PULMONARY HYPERTENSION [None]
  - PULMONARY OEDEMA [None]
  - STAPHYLOCOCCAL INFECTION [None]
  - STATUS EPILEPTICUS [None]
